FAERS Safety Report 6316596-9 (Version None)
Quarter: 2009Q3

REPORT INFORMATION
  Report Type: 
  Country: None (occurrence: None)
  Receive Date: 20090820
  Receipt Date: 20090814
  Transmission Date: 20100115
  Serious: Yes (Disabling)
  Sender: FDA-Public Use
  Company Number: GB-TEVA-205886ISR

PATIENT
  Sex: Male

DRUGS (2)
  1. PHENYTOIN [Suspect]
  2. LACOSAMIDE [Suspect]
     Route: 048
     Dates: start: 20090101

REACTIONS (2)
  - DRUG INTERACTION [None]
  - DRUG TOXICITY [None]
